FAERS Safety Report 6378454-3 (Version None)
Quarter: 2009Q3

REPORT INFORMATION
  Report Type: 
  Country: None (occurrence: None)
  Receive Date: 20090928
  Receipt Date: 20090923
  Transmission Date: 20100115
  Serious: Yes (Hospitalization, Disabling)
  Sender: FDA-Public Use
  Company Number: US-RB-020042-09

PATIENT
  Sex: Male

DRUGS (2)
  1. SUBOXONE [Suspect]
     Indication: DRUG USE FOR UNKNOWN INDICATION
     Dosage: DOSING INFORMATION UNKNOWN.
     Route: 065
  2. TRAMADOL HCL [Suspect]
     Indication: DRUG USE FOR UNKNOWN INDICATION
     Dosage: TOOK MORE THAN PRESCRIBED.
     Route: 065

REACTIONS (7)
  - COORDINATION ABNORMAL [None]
  - DYSARTHRIA [None]
  - EUPHORIC MOOD [None]
  - FALL [None]
  - HIP FRACTURE [None]
  - OVERDOSE [None]
  - UPPER LIMB FRACTURE [None]
